FAERS Safety Report 8099415-2 (Version None)
Quarter: 2012Q1

REPORT INFORMATION
  Report Type: 
  Country: None (occurrence: None)
  Receive Date: 20120129
  Receipt Date: 20111006
  Transmission Date: 20120608
  Serious: No
  Sender: FDA-Public Use
  Company Number: US-ABBOTT-11P-163-0861611-00

PATIENT
  Age: 25 Year
  Sex: Male

DRUGS (3)
  1. HUMIRA [Suspect]
     Indication: CROHN'S DISEASE
     Dates: start: 20110401
  2. PROVIGIL [Concomitant]
     Indication: ILL-DEFINED DISORDER
  3. ZYRTEC [Concomitant]
     Indication: HYPERSENSITIVITY
     Dosage: DAILY

REACTIONS (6)
  - NASAL CONGESTION [None]
  - MUSCLE FATIGUE [None]
  - NASOPHARYNGITIS [None]
  - FATIGUE [None]
  - FLANK PAIN [None]
  - CROHN'S DISEASE [None]
